FAERS Safety Report 25535449 (Version 1)
Quarter: 2025Q3

REPORT INFORMATION
  Report Type: Report from Study
  Country: GB (occurrence: GB)
  Receive Date: 20250709
  Receipt Date: 20250709
  Transmission Date: 20251020
  Serious: Yes (Death)
  Sender: BAUSCH AND LOMB
  Company Number: GB-LEO_Pharma-381136

PATIENT
  Age: 83 Year
  Sex: Male

DRUGS (2)
  1. BRODALUMAB [Suspect]
     Active Substance: BRODALUMAB
     Indication: Psoriasis
     Dosage: 210MG WEEK 0, 1, 2 LOADING DOSE, THEN EVERY TWO WEEKS
     Route: 058
     Dates: start: 202003
  2. BRODALUMAB [Suspect]
     Active Substance: BRODALUMAB
     Dosage: 210MG WEEK 0, 1, 2 LOADING DOSE, THEN EVERY TWO WEEKS
     Route: 058
     Dates: start: 202003

REACTIONS (1)
  - Cardiac failure [Fatal]

NARRATIVE: CASE EVENT DATE: 20250606
